FAERS Safety Report 25330910 (Version 1)
Quarter: 2025Q2

REPORT INFORMATION
  Report Type: Spontaneous
  Country: US (occurrence: None)
  Receive Date: 20250517
  Receipt Date: 20250517
  Transmission Date: 20250717
  Serious: No
  Sender: FDA-CTU
  Company Number: None

PATIENT
  Age: 35 Year
  Sex: Female
  Weight: 69.9 kg

DRUGS (5)
  1. FLUOROURACIL [Suspect]
     Active Substance: FLUOROURACIL
  2. CAMPTOSAR [Suspect]
     Active Substance: IRINOTECAN HYDROCHLORIDE
  3. LEUCOVORIN CALCIUM [Suspect]
     Active Substance: LEUCOVORIN CALCIUM
  4. NIVOLUMAB [Suspect]
     Active Substance: NIVOLUMAB
  5. ELOXATIN [Suspect]
     Active Substance: OXALIPLATIN

REACTIONS (8)
  - Aspartate aminotransferase increased [None]
  - Alanine aminotransferase increased [None]
  - Blood alkaline phosphatase increased [None]
  - Haemoglobin decreased [None]
  - Platelet count decreased [None]
  - Lymphocyte percentage decreased [None]
  - Weight decreased [None]
  - Fatigue [None]

NARRATIVE: CASE EVENT DATE: 20250515
